FAERS Safety Report 8911342 (Version 1)
Quarter: 2012Q4

REPORT INFORMATION
  Report Type: Spontaneous
  Country: GB (occurrence: None)
  Receive Date: 20121113
  Receipt Date: 20121113
  Transmission Date: 20130627
  Serious: Yes (Other)
  Sender: FDA-Public Use
  Company Number: 2012MA013003

PATIENT

DRUGS (1)
  1. KADIAN [Suspect]

REACTIONS (10)
  - Speech disorder [None]
  - Abnormal behaviour [None]
  - Apathy [None]
  - Myoclonus [None]
  - Incontinence [None]
  - Quadriparesis [None]
  - Respiratory depression [None]
  - Amnesia [None]
  - Demyelination [None]
  - Nuclear magnetic resonance imaging brain abnormal [None]
